FAERS Safety Report 9797774 (Version 1)
Quarter: 2014Q1

REPORT INFORMATION
  Report Type: Spontaneous
  Country: US (occurrence: US)
  Receive Date: 20140106
  Receipt Date: 20140106
  Transmission Date: 20141002
  Serious: Yes (Life-Threatening, Hospitalization)
  Sender: FDA-Public Use
  Company Number: US-ROCHE-1327171

PATIENT
  Age: 21 Year
  Sex: Female

DRUGS (2)
  1. RITUXIMAB [Suspect]
     Indication: STILL^S DISEASE ADULT ONSET
     Route: 065
  2. PREDNISONE [Concomitant]
     Route: 065

REACTIONS (3)
  - Pseudosepsis [Recovered/Resolved]
  - Histiocytosis haematophagic [Recovered/Resolved]
  - Acute respiratory distress syndrome [Recovered/Resolved]
